FAERS Safety Report 23753077 (Version 1)
Quarter: 2024Q2

REPORT INFORMATION
  Report Type: Spontaneous
  Country: SE (occurrence: SE)
  Receive Date: 20240417
  Receipt Date: 20240417
  Transmission Date: 20240716
  Serious: Yes (Hospitalization, Other)
  Sender: FDA-Public Use
  Company Number: SE-BIOVITRUM-2024-SE-005841

PATIENT
  Age: 81 Year
  Sex: Female

DRUGS (1)
  1. DOPTELET [Suspect]
     Active Substance: AVATROMBOPAG MALEATE
     Indication: Product used for unknown indication
     Dosage: 20MG, UNKNOWN AMOUNT PER DAY
     Route: 048
     Dates: start: 20231108, end: 20240323

REACTIONS (1)
  - Pulmonary thrombosis [Unknown]
